FAERS Safety Report 21734504 (Version 3)
Quarter: 2023Q2

REPORT INFORMATION
  Report Type: Spontaneous
  Country: US (occurrence: US)
  Receive Date: 20221215
  Receipt Date: 20230407
  Transmission Date: 20230722
  Serious: Yes (Other)
  Sender: FDA-Public Use
  Company Number: US-PFIZER INC-202201369307

PATIENT
  Age: 79 Year
  Sex: Female
  Weight: 64.86 kg

DRUGS (5)
  1. IBRANCE [Suspect]
     Active Substance: PALBOCICLIB
     Indication: Breast cancer female
     Dosage: 125 MG, CYCLIC (DAILY FOR 3 WEEKS ON AND THEN 1 WEEK OFF, REPEAT/ ONCE A DAY AT 6PM FOR 21 DAYS THEN
     Route: 048
     Dates: start: 20221118
  2. ASPIRIN [Concomitant]
     Active Substance: ASPIRIN
     Dosage: UNK
  3. FULVESTRANT [Concomitant]
     Active Substance: FULVESTRANT
     Dosage: UNK
  4. VITAMIN D3 [Concomitant]
     Active Substance: CHOLECALCIFEROL
     Dosage: UNK
  5. XGEVA [Concomitant]
     Active Substance: DENOSUMAB
     Dosage: UNK

REACTIONS (10)
  - Full blood count decreased [Unknown]
  - Tongue coated [Unknown]
  - Ageusia [Unknown]
  - Throat irritation [Unknown]
  - Paraesthesia [Unknown]
  - Limb discomfort [Unknown]
  - Skin discolouration [Unknown]
  - Hair colour changes [Not Recovered/Not Resolved]
  - Alopecia [Not Recovered/Not Resolved]
  - Dry mouth [Recovering/Resolving]

NARRATIVE: CASE EVENT DATE: 20220101
